FAERS Safety Report 6169380-3 (Version None)
Quarter: 2009Q2

REPORT INFORMATION
  Report Type: 
  Country: None (occurrence: None)
  Receive Date: 20090424
  Receipt Date: 20090416
  Transmission Date: 20091009
  Serious: Yes (Other)
  Sender: FDA-Public Use
  Company Number: DSU-2009-00855

PATIENT
  Age: 54 Year
  Sex: Male

DRUGS (1)
  1. OLMESARTAN MEDOXOMIL [Suspect]
     Indication: DRUG USE FOR UNKNOWN INDICATION
     Dosage: 40 MG02
     Dates: start: 20090201, end: 20090307

REACTIONS (2)
  - SCAR [None]
  - STEVENS-JOHNSON SYNDROME [None]
